FAERS Safety Report 21933328 (Version 1)
Quarter: 2023Q1

REPORT INFORMATION
  Report Type: Spontaneous
  Country: US (occurrence: US)
  Receive Date: 20230131
  Receipt Date: 20230131
  Transmission Date: 20230418
  Serious: Yes (Hospitalization, Other)
  Sender: FDA-Public Use
  Company Number: US-009507513-2301USA008909

PATIENT
  Age: 66 Year
  Sex: Male

DRUGS (2)
  1. KEYTRUDA [Suspect]
     Active Substance: PEMBROLIZUMAB
     Indication: Squamous cell carcinoma of the tongue
  2. APIXABAN [Concomitant]
     Active Substance: APIXABAN
     Indication: Pulmonary embolism

REACTIONS (1)
  - Immune-mediated lung disease [Recovered/Resolved]
